FAERS Safety Report 9254722 (Version 1)
Quarter: 2013Q2

REPORT INFORMATION
  Report Type: Spontaneous
  Country: FR (occurrence: None)
  Receive Date: 20130419
  Receipt Date: 20130419
  Transmission Date: 20140414
  Serious: Yes (Hospitalization)
  Sender: FDA-Public Use
  Company Number: FK201301213

PATIENT
  Age: 86 Year
  Sex: 0

DRUGS (4)
  1. FLUOROURACIL [Suspect]
     Indication: COLON CANCER
  2. BEVACIZUMAB [Suspect]
     Indication: COLON CANCER
  3. OXALIPLATIN (OXALIPLATIN) [Concomitant]
  4. FOLINIC ACID (FOLINIC ACID) [Concomitant]

REACTIONS (3)
  - Extravasation [None]
  - Neck pain [None]
  - Odynophagia [None]
